FAERS Safety Report 21872206 (Version 7)
Quarter: 2023Q4

REPORT INFORMATION
  Report Type: Spontaneous
  Country: US (occurrence: US)
  Receive Date: 20230117
  Receipt Date: 20231023
  Transmission Date: 20240109
  Serious: No
  Sender: FDA-Public Use
  Company Number: US-PFIZER INC-202101207111

PATIENT
  Age: 66 Year
  Sex: Female
  Weight: 152 kg

DRUGS (2)
  1. PREMARIN [Suspect]
     Active Substance: ESTROGENS, CONJUGATED
     Indication: Hysterectomy
     Dosage: 0.9 MG, QD (ONCE A DAY)
     Dates: start: 199004
  2. PREMARIN [Suspect]
     Active Substance: ESTROGENS, CONJUGATED
     Dosage: UNK, EVERY OTHER DAY

REACTIONS (2)
  - General physical health deterioration [Unknown]
  - Intentional product misuse [Unknown]
